FAERS Safety Report 15752184 (Version 3)
Quarter: 2019Q2

REPORT INFORMATION
  Report Type: Report from Study
  Country: CA (occurrence: CA)
  Receive Date: 20181221
  Receipt Date: 20190412
  Transmission Date: 20190711
  Serious: Yes (Other)
  Sender: FDA-Public Use
  Company Number: CA-JNJFOC-20181214069

PATIENT
  Sex: Female

DRUGS (2)
  1. TREMFYA [Suspect]
     Active Substance: GUSELKUMAB
     Indication: PITYRIASIS RUBRA PILARIS
     Dosage: STRENGTH = 100 MG
     Dates: start: 20180626
  2. TREMFYA [Suspect]
     Active Substance: GUSELKUMAB
     Indication: PSORIASIS
     Dosage: STRENGTH = 100 MG
     Dates: start: 20180626

REACTIONS (7)
  - Product use in unapproved indication [Unknown]
  - Off label use [Unknown]
  - Therapeutic response unexpected [Unknown]
  - Meningitis [Not Recovered/Not Resolved]
  - Oropharyngeal pain [Not Recovered/Not Resolved]
  - Cough [Not Recovered/Not Resolved]
  - Laryngitis [Not Recovered/Not Resolved]
